FAERS Safety Report 14682578 (Version 1)
Quarter: 2018Q1

REPORT INFORMATION
  Report Type: Spontaneous
  Country: DE (occurrence: DE)
  Receive Date: 20180327
  Receipt Date: 20180327
  Transmission Date: 20180509
  Serious: No
  Sender: FDA-Public Use
  Company Number: DE-HORMOSAN-2017-07419

PATIENT
  Sex: Male

DRUGS (1)
  1. SERTRALIN-HORMOSAN FILMTABLETTEN [Suspect]
     Active Substance: SERTRALINE HYDROCHLORIDE
     Indication: DEPRESSION
     Dosage: UNK
     Route: 065

REACTIONS (1)
  - Lymphopenia [Not Recovered/Not Resolved]
